FAERS Safety Report 18431099 (Version 1)
Quarter: 2020Q4

REPORT INFORMATION
  Report Type: Spontaneous
  Country: GB (occurrence: FR)
  Receive Date: 20201027
  Receipt Date: 20201027
  Transmission Date: 20210114
  Serious: Yes (Hospitalization)
  Sender: FDA-Public Use
  Company Number: FR-TEVA-2020-FR-1841056

PATIENT
  Age: 50 Year
  Sex: Male

DRUGS (1)
  1. CLOZAPINE. [Suspect]
     Active Substance: CLOZAPINE
     Indication: PRODUCT USED FOR UNKNOWN INDICATION
     Dosage: UNK,THERAPY START DATE :ASKU,THERAPY END DATE :ASKU
     Route: 065

REACTIONS (5)
  - Patient uncooperative [Unknown]
  - Product preparation issue [Unknown]
  - Incorrect product formulation administered [Unknown]
  - Incorrect dose administered [Unknown]
  - Drug level below therapeutic [Unknown]
